FAERS Safety Report 16893409 (Version 1)
Quarter: 2019Q4

REPORT INFORMATION
  Report Type: Spontaneous
  Country: AU (occurrence: AU)
  Receive Date: 20191008
  Receipt Date: 20191008
  Transmission Date: 20200122
  Serious: Yes (Death)
  Sender: FDA-Public Use
  Company Number: AU-GLAXOSMITHKLINE-AU2019APC178340

PATIENT

DRUGS (1)
  1. SALBUTAMOL [Suspect]
     Active Substance: ALBUTEROL
     Indication: ASTHMA
     Dosage: UNK

REACTIONS (2)
  - Drug ineffective [Fatal]
  - Adverse drug reaction [Unknown]
